FAERS Safety Report 6141907-7 (Version None)
Quarter: 2009Q2

REPORT INFORMATION
  Report Type: 
  Country: None (occurrence: None)
  Receive Date: 20090402
  Receipt Date: 20090326
  Transmission Date: 20091009
  Serious: Yes (Other)
  Sender: FDA-Public Use
  Company Number: CA-ALLERGAN-0904290US

PATIENT
  Sex: Male

DRUGS (1)
  1. BOTOX [Suspect]
     Indication: BENIGN PROSTATIC HYPERPLASIA
     Dosage: 300 UNITS, SINGLE
     Route: 066

REACTIONS (1)
  - URINARY RETENTION [None]
